FAERS Safety Report 4548526-4 (Version None)
Quarter: 2005Q1

REPORT INFORMATION
  Report Type: 
  Country: None (occurrence: None)
  Receive Date: 20050110
  Receipt Date: 20041230
  Transmission Date: 20050727
  Serious: Yes (Other)
  Sender: FDA-Public Use
  Company Number: IT-GLAXOSMITHKLINE-B0363824A

PATIENT
  Age: 59 Year
  Sex: Female

DRUGS (2)
  1. RANITIDINE [Suspect]
     Dosage: 300MG PER DAY
     Route: 048
     Dates: start: 20041213, end: 20041226
  2. OCTATROPINE METHYLBROMIDE [Concomitant]
     Route: 048

REACTIONS (3)
  - DERMATITIS BULLOUS [None]
  - EYELID OEDEMA [None]
  - FACE OEDEMA [None]
